FAERS Safety Report 5801161-X (Version None)
Quarter: 2008Q3

REPORT INFORMATION
  Report Type: 
  Country: None (occurrence: None)
  Receive Date: 20080707
  Receipt Date: 20080630
  Transmission Date: 20090109
  Serious: Yes (Life-Threatening, Hospitalization, Other)
  Sender: FDA-Public Use
  Company Number: PHHY2008US10303

PATIENT
  Sex: Female

DRUGS (1)
  1. EXJADE [Suspect]
     Indication: IRON OVERLOAD
     Route: 048

REACTIONS (14)
  - CEREBROVASCULAR ACCIDENT [None]
  - ECHOCARDIOGRAM [None]
  - GASTROOESOPHAGEAL REFLUX DISEASE [None]
  - HYPERTENSION [None]
  - KIDNEY INFECTION [None]
  - NUCLEAR MAGNETIC RESONANCE IMAGING BRAIN [None]
  - OESOPHAGITIS ULCERATIVE [None]
  - OSTEOARTHRITIS [None]
  - OSTEOPENIA [None]
  - PHLEBOTOMY [None]
  - RENAL FAILURE [None]
  - ULCER HAEMORRHAGE [None]
  - ULTRASOUND KIDNEY [None]
  - URINARY TRACT INFECTION [None]
